FAERS Safety Report 15984102 (Version 2)
Quarter: 2019Q3

REPORT INFORMATION
  Report Type: Report from Study
  Country: DE (occurrence: DE)
  Receive Date: 20190220
  Receipt Date: 20190716
  Transmission Date: 20191004
  Serious: Yes (Hospitalization, Other)
  Sender: FDA-Public Use
  Company Number: DE-ROCHE-2142422

PATIENT
  Age: 30 Year
  Sex: Female

DRUGS (5)
  1. TRAMAL [Concomitant]
     Active Substance: TRAMADOL
     Dosage: 15-20 GTT
     Route: 065
  2. OCREVUS [Suspect]
     Active Substance: OCRELIZUMAB
     Indication: RELAPSING-REMITTING MULTIPLE SCLEROSIS
     Dosage: SECOND INFUSION: 28/JUN/2018
     Route: 042
     Dates: start: 20180614
  3. OCREVUS [Suspect]
     Active Substance: OCRELIZUMAB
     Dosage: 27/JUN/2019, RECEIVED SAME SUBSEQUENT DOSE
     Route: 042
     Dates: start: 20181220
  4. GABAPENTIN. [Concomitant]
     Active Substance: GABAPENTIN
     Dosage: IN THE MORNING
     Route: 065
  5. GABAPENTIN. [Concomitant]
     Active Substance: GABAPENTIN
     Dosage: AT MIDDAY AND IN THE EVENING
     Route: 065

REACTIONS (9)
  - Pain in extremity [Recovered/Resolved]
  - Multiple sclerosis relapse [Recovered/Resolved]
  - Headache [Recovered/Resolved]
  - Uhthoff^s phenomenon [Recovered/Resolved]
  - Metrorrhagia [Recovered/Resolved]
  - Fatigue [Recovered/Resolved]
  - Malaise [Recovered/Resolved]
  - Nasopharyngitis [Recovered/Resolved]
  - Nuclear magnetic resonance imaging abnormal [Unknown]

NARRATIVE: CASE EVENT DATE: 20180614
